FAERS Safety Report 6351079-1 (Version None)
Quarter: 2009Q3

REPORT INFORMATION
  Report Type: 
  Country: None (occurrence: None)
  Receive Date: 20090912
  Receipt Date: 20090622
  Transmission Date: 20100115
  Serious: No
  Sender: FDA-Public Use
  Company Number: US-ABBOTT-07P-163-0376051-00

PATIENT
  Sex: Female
  Weight: 71.732 kg

DRUGS (11)
  1. HUMIRA [Suspect]
     Indication: RHEUMATOID ARTHRITIS
     Dosage: PEN
     Route: 058
     Dates: start: 20070101
  2. HUMIRA [Suspect]
     Dosage: PFS
     Route: 058
     Dates: start: 20050101, end: 20070101
  3. VALSARTAN [Concomitant]
     Indication: HYPERTENSION
     Route: 048
  4. CELECOXIB [Concomitant]
     Indication: OSTEOARTHRITIS
     Route: 048
  5. METHOTREXATE [Concomitant]
     Indication: RHEUMATOID ARTHRITIS
     Route: 048
  6. HYDROCHLOROTHIAZIDE [Concomitant]
     Indication: DIURETIC THERAPY
     Route: 048
  7. HYDROXYCHLOROQUINE SULFATE [Concomitant]
     Indication: RHEUMATOID ARTHRITIS
     Route: 048
  8. FOLIC ACID [Concomitant]
     Indication: VITAMIN SUPPLEMENTATION
     Route: 048
  9. DULOXETINE HYDROCHLORIDE [Concomitant]
     Indication: PAIN
     Route: 048
  10. INEGY [Concomitant]
     Indication: HYPERTENSION
     Dosage: 10/20MG EVERY DAY (TOTAL DAILY DOSE)
     Route: 048
  11. INEGY [Concomitant]
     Indication: BLOOD CHOLESTEROL

REACTIONS (2)
  - INCORRECT DOSE ADMINISTERED [None]
  - WRONG TECHNIQUE IN DRUG USAGE PROCESS [None]
